FAERS Safety Report 12736323 (Version 2)
Quarter: 2016Q4

REPORT INFORMATION
  Report Type: Spontaneous
  Country: US (occurrence: US)
  Receive Date: 20160913
  Receipt Date: 20161028
  Transmission Date: 20170207
  Serious: Yes (Hospitalization, Other)
  Sender: FDA-Public Use
  Company Number: US-AMGEN-USASP2016121346

PATIENT
  Age: 83 Year
  Sex: Male
  Weight: 176 kg

DRUGS (3)
  1. XGEVA [Suspect]
     Active Substance: DENOSUMAB
     Indication: PROSTATE CANCER METASTATIC
     Dosage: 120 MG, QMO
     Route: 058
     Dates: start: 20140324
  2. XGEVA [Suspect]
     Active Substance: DENOSUMAB
     Indication: METASTASES TO BONE
  3. XGEVA [Suspect]
     Active Substance: DENOSUMAB
     Indication: PROPHYLAXIS

REACTIONS (11)
  - Urosepsis [Recovered/Resolved]
  - Purulent discharge [Unknown]
  - Pain [Recovered/Resolved]
  - Gingival pain [Unknown]
  - Dehydration [Unknown]
  - Metastases to bone [Unknown]
  - Gingival swelling [Recovered/Resolved]
  - Tooth abscess [Recovering/Resolving]
  - Prostatitis [Unknown]
  - Device failure [Unknown]
  - Pain in jaw [Recovered/Resolved]

NARRATIVE: CASE EVENT DATE: 201603
